FAERS Safety Report 25725710 (Version 1)
Quarter: 2025Q3

REPORT INFORMATION
  Report Type: Spontaneous
  Country: CA (occurrence: CA)
  Receive Date: 20250826
  Receipt Date: 20250826
  Transmission Date: 20251021
  Serious: Yes (Other)
  Sender: EISAI
  Company Number: CA-Eisai-EC-2025-195456

PATIENT
  Age: 73 Year
  Sex: Male

DRUGS (1)
  1. DAYVIGO [Suspect]
     Active Substance: LEMBOREXANT
     Indication: Product used for unknown indication
     Route: 048

REACTIONS (2)
  - Confusional state [Recovering/Resolving]
  - Sedation [Recovering/Resolving]
